APPROVED DRUG PRODUCT: KETOROLAC TROMETHAMINE
Active Ingredient: KETOROLAC TROMETHAMINE
Strength: 30MG/ML
Dosage Form/Route: INJECTABLE;INJECTION
Application: A077201 | Product #001
Applicant: APOTEX INC
Approved: Oct 14, 2005 | RLD: No | RS: No | Type: DISCN